FAERS Safety Report 6085992-X (Version None)
Quarter: 2009Q1

REPORT INFORMATION
  Report Type: 
  Country: None (occurrence: None)
  Receive Date: 20090220
  Receipt Date: 20090210
  Transmission Date: 20090719
  Serious: Yes (Death, Other)
  Sender: FDA-Public Use
  Company Number: US-BAXTER-2008BH005400

PATIENT
  Age: 47 Year
  Sex: Male
  Weight: 120 kg

DRUGS (23)
  1. HEPARIN SODIUM INJECTION [Suspect]
     Indication: CORONARY ARTERY BYPASS
     Route: 042
     Dates: start: 20060517, end: 20060517
  2. HEPARIN SODIUM INJECTION [Suspect]
     Route: 042
     Dates: start: 20060517, end: 20060517
  3. HEPARIN SODIUM INJECTION [Suspect]
     Route: 042
     Dates: start: 20060517, end: 20060517
  4. HEPARIN SODIUM INJECTION [Suspect]
     Route: 042
     Dates: start: 20060517, end: 20060517
  5. HEPARIN SODIUM INJECTION [Suspect]
     Route: 042
     Dates: start: 20060517, end: 20060517
  6. HEPARIN SODIUM INJECTION [Suspect]
     Route: 042
     Dates: start: 20060517, end: 20060517
  7. TRASYLOL [Suspect]
     Indication: DRUG USE FOR UNKNOWN INDICATION
     Dosage: DOSE UNIT:UNKNOWN
     Route: 065
     Dates: start: 20060501, end: 20060501
  8. PLAVIX [Concomitant]
     Indication: DRUG USE FOR UNKNOWN INDICATION
     Route: 065
  9. LIPITOR [Concomitant]
     Indication: DRUG USE FOR UNKNOWN INDICATION
     Route: 065
  10. TOPROL-XL [Concomitant]
     Indication: DRUG USE FOR UNKNOWN INDICATION
     Route: 065
  11. SYNTHROID [Concomitant]
     Indication: DRUG USE FOR UNKNOWN INDICATION
     Route: 065
  12. DIOVAN HCT [Concomitant]
     Indication: DRUG USE FOR UNKNOWN INDICATION
     Route: 065
  13. IMDUR [Concomitant]
     Indication: DRUG USE FOR UNKNOWN INDICATION
     Route: 065
  14. TRICOR [Concomitant]
     Indication: DRUG USE FOR UNKNOWN INDICATION
     Route: 065
  15. TRICOR [Concomitant]
     Route: 065
  16. ASPIRIN [Concomitant]
     Indication: DRUG USE FOR UNKNOWN INDICATION
     Route: 065
  17. FLAX SEED OIL [Concomitant]
     Indication: DRUG USE FOR UNKNOWN INDICATION
     Route: 065
  18. MEN'S MULTIVITAMIN [Concomitant]
     Indication: DRUG USE FOR UNKNOWN INDICATION
     Route: 065
  19. FISH OIL [Concomitant]
     Indication: DRUG USE FOR UNKNOWN INDICATION
     Route: 065
  20. NIACIN [Concomitant]
     Indication: DRUG USE FOR UNKNOWN INDICATION
     Route: 065
  21. PROTONIX [Concomitant]
     Indication: DRUG USE FOR UNKNOWN INDICATION
     Route: 065
  22. AMBIEN [Concomitant]
     Indication: DRUG USE FOR UNKNOWN INDICATION
     Route: 065
  23. ISMO [Concomitant]
     Indication: DRUG USE FOR UNKNOWN INDICATION
     Route: 065

REACTIONS (18)
  - ACUTE PULMONARY OEDEMA [None]
  - CARDIAC FAILURE CONGESTIVE [None]
  - CARDIAC PROCEDURE COMPLICATION [None]
  - CARDIOGENIC SHOCK [None]
  - COAGULOPATHY [None]
  - CORONARY ARTERY DISEASE [None]
  - DIFFUSE ALVEOLAR DAMAGE [None]
  - DRUG HYPERSENSITIVITY [None]
  - GENERAL PHYSICAL HEALTH DETERIORATION [None]
  - HAEMODYNAMIC INSTABILITY [None]
  - HYPOTENSION [None]
  - HYPOXIA [None]
  - MEDIASTINAL HAEMATOMA [None]
  - MULTI-ORGAN FAILURE [None]
  - POST PROCEDURAL HAEMORRHAGE [None]
  - PULMONARY CONGESTION [None]
  - PULMONARY HAEMORRHAGE [None]
  - UNRESPONSIVE TO STIMULI [None]
